FAERS Safety Report 9496604 (Version 1)
Quarter: 2013Q3

REPORT INFORMATION
  Report Type: Spontaneous
  Country: JP (occurrence: None)
  Receive Date: 20130828
  Receipt Date: 20130828
  Transmission Date: 20140515
  Serious: Yes (Hospitalization)
  Sender: FDA-Public Use
  Company Number: 0241024

PATIENT
  Age: 55 Year
  Sex: Male

DRUGS (7)
  1. TACHOSIL [Suspect]
     Indication: HAEMOSTASIS
     Dosage: (1 SHEET OF HALF SIZE)
     Dates: start: 20130611
  2. LOXOPROFEN (LOXOPROFEN) (TABLET) [Concomitant]
  3. PACETCOOL (CEFOTIAM HYDROCHLORIDE) (TABLETS) [Concomitant]
  4. MINOFIT (PANCREATIN) (TABLETS) [Concomitant]
  5. KAYTWO N [Concomitant]
  6. TAKEPRON OD (LANSOPRAZOLE) [Concomitant]
  7. TRIAZOLAM (TRIAZOLAM) [Concomitant]

REACTIONS (2)
  - Post procedural bile leak [None]
  - Red blood cell count decreased [None]
